FAERS Safety Report 12456024 (Version 1)
Quarter: 2016Q2

REPORT INFORMATION
  Report Type: Spontaneous
  Country: US (occurrence: None)
  Receive Date: 20160609
  Receipt Date: 20160609
  Transmission Date: 20160815
  Serious: No
  Sender: FDA-Public Use
  Company Number: None

PATIENT
  Age: 51 Year
  Sex: Female

DRUGS (5)
  1. IBRANCE [Suspect]
     Active Substance: PALBOCICLIB
     Indication: BREAST CANCER
     Dosage: 1 CAPS QD X 21 PO
     Route: 048
     Dates: start: 20160530
  2. LETROZOLE 2.5MG TAB TEVA [Suspect]
     Active Substance: LETROZOLE
     Indication: BREAST CANCER
     Dosage: 1 TAB DAILY PO
     Route: 048
     Dates: start: 20160530
  3. MELATONIN [Concomitant]
     Active Substance: MELATONIN
  4. BENADRYL [Concomitant]
     Active Substance: DIPHENHYDRAMINE HYDROCHLORIDE
  5. TYLENOL [Concomitant]
     Active Substance: ACETAMINOPHEN

REACTIONS (8)
  - Dizziness [None]
  - Nausea [None]
  - Alopecia [None]
  - Night sweats [None]
  - Headache [None]
  - Hot flush [None]
  - Mental impairment [None]
  - Diarrhoea [None]

NARRATIVE: CASE EVENT DATE: 20160530
